FAERS Safety Report 11109447 (Version 2)
Quarter: 2015Q2

REPORT INFORMATION
  Report Type: Spontaneous
  Country: SI (occurrence: SI)
  Receive Date: 20150513
  Receipt Date: 20150528
  Transmission Date: 20150821
  Serious: Yes (Hospitalization)
  Sender: FDA-Public Use
  Company Number: SI-AMGEN-SVNSP2015045059

PATIENT
  Age: 79 Year
  Sex: Female

DRUGS (6)
  1. ZALDIAR [Concomitant]
     Active Substance: ACETAMINOPHEN\TRAMADOL HYDROCHLORIDE
  2. ASPIRIN PROTECT [Concomitant]
     Active Substance: ASPIRIN
  3. ULTOP                              /00661201/ [Concomitant]
     Dosage: 20 MG, UNK
  4. PROLIA [Suspect]
     Active Substance: DENOSUMAB
     Indication: OSTEOPOROSIS POSTMENOPAUSAL
     Dosage: 60 MG, Q6MO
     Route: 058
     Dates: start: 20140623
  5. PLIVIT D3 [Concomitant]
     Active Substance: CHOLECALCIFEROL
  6. BYOL [Concomitant]
     Active Substance: BISOPROLOL
     Dosage: 2.5 MG, UNK

REACTIONS (3)
  - Hypocalcaemia [Recovered/Resolved]
  - Vitamin D deficiency [Unknown]
  - Rheumatoid arthritis [Unknown]

NARRATIVE: CASE EVENT DATE: 20150330
